FAERS Safety Report 18378051 (Version 1)
Quarter: 2020Q4

REPORT INFORMATION
  Report Type: Spontaneous
  Country: CA (occurrence: CA)
  Receive Date: 20201013
  Receipt Date: 20201013
  Transmission Date: 20210114
  Serious: Yes (Other)
  Sender: FDA-Public Use
  Company Number: CA-JNJFOC-20201008580

PATIENT
  Age: 55 Year
  Sex: Male

DRUGS (1)
  1. REMICADE [Suspect]
     Active Substance: INFLIXIMAB
     Indication: RHEUMATOID ARTHRITIS
     Route: 042

REACTIONS (10)
  - Product use issue [Unknown]
  - Intentional product use issue [Unknown]
  - Back pain [Unknown]
  - Musculoskeletal pain [Unknown]
  - Pain in extremity [Unknown]
  - Off label use [Unknown]
  - Oxygen saturation decreased [Unknown]
  - Joint effusion [Unknown]
  - Blood pressure fluctuation [Unknown]
  - Oedema peripheral [Unknown]
